FAERS Safety Report 7833501-4 (Version None)
Quarter: 2011Q4

REPORT INFORMATION
  Report Type: 
  Country: None (occurrence: None)
  Receive Date: 20111024
  Receipt Date: 20111019
  Transmission Date: 20120403
  Serious: Yes (Hospitalization)
  Sender: FDA-Public Use
  Company Number: FR-PFIZER INC-2010010365

PATIENT
  Age: 56 Year
  Sex: Male

DRUGS (20)
  1. ACETAMINOPHEN [Suspect]
     Dosage: 4 DF PER DAY
     Route: 042
     Dates: start: 20080629, end: 20080717
  2. CIPROFLOXACIN [Suspect]
     Dosage: 3 DF PER DAY
     Route: 042
     Dates: start: 20080702, end: 20080704
  3. LEVOFLOXACIN [Suspect]
     Indication: PNEUMONIA LEGIONELLA
     Dosage: 2 DF PER DAY
     Route: 042
     Dates: start: 20080703
  4. VENOFER [Suspect]
     Dosage: 3 DF PER DAY
     Route: 042
     Dates: start: 20080711
  5. ACETAMINOPHEN [Suspect]
     Dosage: 4 DF PER DAY
     Route: 048
     Dates: start: 20080718
  6. SOLU-MEDROL [Concomitant]
     Dosage: UNK
     Route: 048
     Dates: start: 20080720
  7. MOXIFLOXACIN HCL [Suspect]
     Dosage: 1 DF PER DAY
     Route: 042
     Dates: start: 20080629, end: 20080702
  8. NUTRIFLEX ^BRAUN^ [Suspect]
  9. ZYVOX [Suspect]
     Indication: PROPHYLAXIS
     Dosage: 3 DF PER DAY
     Route: 048
     Dates: start: 20080714
  10. DESLORATADINE [Suspect]
     Dosage: 1 DF PER DAY
     Route: 048
     Dates: start: 20080709
  11. PIPERACILLIN AND TAZOBACTAM [Suspect]
     Dosage: UNK
     Route: 042
     Dates: start: 20080707, end: 20080711
  12. OMEPRAZOLE [Suspect]
     Dosage: 1 DF PER DAY
     Route: 048
     Dates: start: 20080717
  13. TIENAM [Suspect]
     Indication: PROPHYLAXIS
     Dosage: 3 DF PER DAY
     Route: 048
     Dates: start: 20080718
  14. FLUCONAZOLE [Concomitant]
     Dosage: UNK
     Route: 048
     Dates: start: 20080725
  15. INNOHEP [Concomitant]
     Dosage: UNK
     Route: 042
     Dates: start: 20080629, end: 20080704
  16. ROCEPHIN [Suspect]
     Dosage: 2 DF PER DAY
     Route: 042
     Dates: start: 20080629, end: 20080702
  17. LOVENOX [Suspect]
     Dosage: 1 DF PER DAY
     Route: 058
     Dates: start: 20080705
  18. SUCRALFATE [Concomitant]
     Dosage: UNK
     Route: 048
     Dates: start: 20080630, end: 20080716
  19. CLARITHROMYCIN [Suspect]
     Indication: PNEUMONIA LEGIONELLA
     Dosage: 2 DF PER DAY
     Route: 042
     Dates: start: 20080629, end: 20080714
  20. ATARAX [Concomitant]
     Dosage: UNK
     Route: 048
     Dates: start: 20080725

REACTIONS (1)
  - CYTOLYTIC HEPATITIS [None]
